FAERS Safety Report 4435735-8 (Version None)
Quarter: 2004Q3

REPORT INFORMATION
  Report Type: 
  Country: None (occurrence: None)
  Receive Date: 20040826
  Receipt Date: 20040810
  Transmission Date: 20050211
  Serious: Yes (Death, Hospitalization)
  Sender: FDA-Public Use
  Company Number: 199676

PATIENT
  Age: 62 Year
  Sex: Female

DRUGS (6)
  1. AVONEX [Suspect]
     Indication: MULTIPLE SCLEROSIS
     Dosage: 30 MCG QW IM
     Route: 030
     Dates: start: 20010406, end: 20030801
  2. AVONEX [Suspect]
     Indication: MULTIPLE SCLEROSIS
     Dosage: 30 MCG QW IM
     Route: 030
     Dates: start: 20030806
  3. AMANTADINE HCL [Concomitant]
  4. BACLOFEN [Concomitant]
  5. PREMPRO [Concomitant]
  6. SULINDAC [Concomitant]

REACTIONS (2)
  - COLON CANCER [None]
  - SMALL INTESTINAL OBSTRUCTION [None]
